FAERS Safety Report 22962931 (Version 2)
Quarter: 2023Q4

REPORT INFORMATION
  Report Type: Report from Study
  Country: US (occurrence: US)
  Receive Date: 20230920
  Receipt Date: 20231011
  Transmission Date: 20240109
  Serious: Yes (Other)
  Sender: FDA-Public Use
  Company Number: US-UCBSA-2023008649

PATIENT
  Age: 33 Year
  Sex: Male
  Weight: 59.1 kg

DRUGS (8)
  1. FINTEPLA [Suspect]
     Active Substance: FENFLURAMINE
     Indication: Epilepsy
     Dosage: 5.9 MILLILITER, 2X/DAY (BID)
     Dates: start: 20220824
  2. FINTEPLA [Suspect]
     Active Substance: FENFLURAMINE
     Dosage: 5.9 MILLILITER, 2X/DAY (BID)
     Dates: start: 20220823
  3. FINTEPLA [Suspect]
     Active Substance: FENFLURAMINE
     Dosage: 0.44 MG/KG/DAY AND 26 MG/DAY
     Dates: start: 20220824, end: 20230914
  4. FINTEPLA [Suspect]
     Active Substance: FENFLURAMINE
     Dosage: 5.9 MILLIGRAM, 2X/DAY (BID) BY MOUTH TWICE A DAY
     Route: 048
  5. CLOBAZAM [Concomitant]
     Active Substance: CLOBAZAM
     Indication: Epilepsy
     Dosage: 10 MG AM AND 10 MG PM
     Route: 048
     Dates: start: 2014
  6. KEPPRA [Concomitant]
     Active Substance: LEVETIRACETAM
     Indication: Epilepsy
     Dosage: 1500MG AM AND 1750MG PM
     Route: 048
     Dates: start: 2014
  7. XCOPRI [Concomitant]
     Active Substance: CENOBAMATE
     Indication: Epilepsy
     Dosage: 150 MILLIGRAM QPM
     Route: 048
     Dates: start: 2021
  8. CARNITOR [Concomitant]
     Active Substance: LEVOCARNITINE
     Indication: Nutritional supplementation
     Dosage: 330 MILLIGRAM, 2X/DAY (BID)
     Route: 048
     Dates: start: 2015

REACTIONS (4)
  - Seizure [Not Recovered/Not Resolved]
  - Pericardial effusion [Not Recovered/Not Resolved]
  - COVID-19 [Recovered/Resolved]
  - Echocardiogram abnormal [Not Recovered/Not Resolved]

NARRATIVE: CASE EVENT DATE: 20230203
